FAERS Safety Report 13191021 (Version 1)
Quarter: 2017Q1

REPORT INFORMATION
  Report Type: Report from Study
  Country: CA (occurrence: CA)
  Receive Date: 20170207
  Receipt Date: 20170207
  Transmission Date: 20170428
  Serious: Yes (Other)
  Sender: FDA-Public Use
  Company Number: CA-AMGEN-CANSL2017018280

PATIENT
  Sex: Female

DRUGS (1)
  1. ENBREL [Suspect]
     Active Substance: ETANERCEPT
     Indication: RHEUMATOID ARTHRITIS
     Dosage: 50 MG, QWK
     Route: 065
     Dates: start: 20031113

REACTIONS (5)
  - Red blood cell sedimentation rate increased [Unknown]
  - Synovitis [Recovering/Resolving]
  - C-reactive protein increased [Unknown]
  - Lung neoplasm [Unknown]
  - Arthritis [Unknown]

NARRATIVE: CASE EVENT DATE: 201608
